FAERS Safety Report 15468265 (Version 1)
Quarter: 2018Q4

REPORT INFORMATION
  Report Type: Spontaneous
  Country: TR (occurrence: TR)
  Receive Date: 20181005
  Receipt Date: 20181005
  Transmission Date: 20190204
  Serious: Yes (Hospitalization)
  Sender: FDA-Public Use
  Company Number: TR-ASTRAZENECA-2018SF05676

PATIENT
  Sex: Male
  Weight: 107 kg

DRUGS (8)
  1. DIAFORMIN [Concomitant]
     Active Substance: METFORMIN HYDROCHLORIDE
     Indication: TYPE 2 DIABETES MELLITUS
     Route: 048
  2. XATRAL [Concomitant]
     Active Substance: ALFUZOSIN
     Indication: PROSTATIC DISORDER
     Route: 048
  3. LANTUS [Concomitant]
     Active Substance: INSULIN GLARGINE
     Indication: TYPE 2 DIABETES MELLITUS
     Dosage: DAILY
     Route: 058
  4. BYETTA [Suspect]
     Active Substance: EXENATIDE
     Indication: TYPE 2 DIABETES MELLITUS
     Route: 065
     Dates: start: 201806
  5. ECOPIRIN [Concomitant]
     Active Substance: ASPIRIN
     Indication: CARDIAC DISORDER
     Route: 048
  6. BYETTA [Suspect]
     Active Substance: EXENATIDE
     Indication: TYPE 2 DIABETES MELLITUS
     Route: 065
     Dates: start: 201807
  7. NEBIVOLOL HYDROCHLORIDE [Concomitant]
     Active Substance: NEBIVOLOL HYDROCHLORIDE
     Indication: CARDIAC DISORDER
     Route: 048
  8. BYETTA [Suspect]
     Active Substance: EXENATIDE
     Indication: WEIGHT INCREASED
     Route: 065
     Dates: start: 201807

REACTIONS (3)
  - Blood glucose increased [Unknown]
  - Hyperglycaemia [Unknown]
  - Drug ineffective [Unknown]

NARRATIVE: CASE EVENT DATE: 201806
